FAERS Safety Report 8500154-1 (Version None)
Quarter: 2012Q3

REPORT INFORMATION
  Report Type: 
  Country: None (occurrence: None)
  Receive Date: 20120710
  Receipt Date: 20120705
  Transmission Date: 20120928
  Serious: No
  Sender: FDA-Public Use
  Company Number: US-PFIZER INC-2012130431

PATIENT
  Sex: Female
  Weight: 57.596 kg

DRUGS (6)
  1. PREMARIN [Suspect]
  2. PREMARIN [Suspect]
     Indication: OSTEOPOROSIS PROPHYLAXIS
  3. PREMARIN [Suspect]
  4. PREMARIN [Suspect]
     Indication: ISCHAEMIC HEART DISEASE PROPHYLAXIS
  5. PREMARIN [Suspect]
     Dosage: UNK
     Dates: end: 20090101
  6. PREMARIN [Suspect]
     Indication: POSTMENOPAUSE
     Dosage: 0.625 MG, DAILY
     Dates: end: 20090101

REACTIONS (1)
  - HYPERHIDROSIS [None]
